FAERS Safety Report 6825922-3 (Version None)
Quarter: 2010Q3

REPORT INFORMATION
  Report Type: 
  Country: None (occurrence: None)
  Receive Date: 20100709
  Receipt Date: 20100702
  Transmission Date: 20110219
  Serious: Yes (Hospitalization, Other)
  Sender: FDA-Public Use
  Company Number: US-ASTRAZENECA-2007UW12495

PATIENT
  Age: 12283 Day
  Sex: Male
  Weight: 99.8 kg

DRUGS (13)
  1. SEROQUEL [Suspect]
     Indication: BIPOLAR DISORDER
     Route: 048
     Dates: start: 20050102
  2. SEROQUEL [Suspect]
     Route: 048
     Dates: start: 20050501, end: 20071021
  3. ZYPREXA [Concomitant]
     Indication: BIPOLAR DISORDER
     Dates: start: 20040801, end: 20050501
  4. KLONOPIN [Concomitant]
     Indication: BIPOLAR DISORDER
     Dosage: 0.5-2 MG
  5. EFFEXOR [Concomitant]
     Indication: BIPOLAR DISORDER
     Dosage: 225 MG
     Dates: start: 20080101
  6. LOVASTATIN [Concomitant]
     Indication: BLOOD CHOLESTEROL INCREASED
  7. LOVASTATIN [Concomitant]
     Indication: HYPERLIPIDAEMIA
  8. GEODON [Concomitant]
     Dosage: 80 MG
     Dates: start: 20070101, end: 20080101
  9. HALDOL [Concomitant]
     Dates: start: 20040101
  10. THORAZINE [Concomitant]
     Dates: start: 20050101, end: 20080101
  11. LAMICTAL [Concomitant]
     Dosage: 200 MG
     Dates: start: 20080101
  12. LITHIUM CARBONATE [Concomitant]
     Dosage: 300 MG
     Dates: start: 20080101
  13. ZOLOFT [Concomitant]
     Dosage: 100 MG
     Dates: start: 20080101

REACTIONS (16)
  - ABDOMINAL PAIN [None]
  - ALTERED STATE OF CONSCIOUSNESS [None]
  - BLOOD GLUCOSE DECREASED [None]
  - DIABETES MELLITUS INADEQUATE CONTROL [None]
  - DIABETIC COMA [None]
  - DIABETIC KETOACIDOSIS [None]
  - FALL [None]
  - HEPATIC FAILURE [None]
  - HYPERGLYCAEMIA [None]
  - LIVER DISORDER [None]
  - LOSS OF CONSCIOUSNESS [None]
  - PANCREATITIS [None]
  - RENAL FAILURE [None]
  - SKIN LACERATION [None]
  - TYPE 1 DIABETES MELLITUS [None]
  - TYPE 2 DIABETES MELLITUS [None]
